FAERS Safety Report 5705602-8 (Version None)
Quarter: 2008Q2

REPORT INFORMATION
  Report Type: 
  Country: None (occurrence: None)
  Receive Date: 20080411
  Receipt Date: 20080402
  Transmission Date: 20081010
  Serious: Yes (Hospitalization)
  Sender: FDA-Public Use
  Company Number: 2008BI008787

PATIENT
  Age: 51 Year
  Sex: Female
  Weight: 61.2356 kg

DRUGS (1)
  1. AVONEX [Suspect]
     Indication: MULTIPLE SCLEROSIS
     Dosage: 30 UG; QW; IM
     Route: 030
     Dates: start: 20020131, end: 20080201

REACTIONS (7)
  - BALANCE DISORDER [None]
  - FALL [None]
  - FATIGUE [None]
  - HEAD INJURY [None]
  - INFLUENZA [None]
  - LOSS OF CONSCIOUSNESS [None]
  - VOMITING [None]
